FAERS Safety Report 9145293 (Version 1)
Quarter: 2013Q1

REPORT INFORMATION
  Report Type: Spontaneous
  Country: US (occurrence: None)
  Receive Date: 20130226
  Receipt Date: 20130226
  Transmission Date: 20140127
  Serious: No
  Sender: FDA-Public Use
  Company Number: None

PATIENT
  Sex: Female

DRUGS (1)
  1. EXJADE 500MG NOVARTIS [Suspect]
     Indication: IRON OVERLOAD
     Route: 048
     Dates: start: 20120615

REACTIONS (5)
  - Dizziness [None]
  - Somnolence [None]
  - Diarrhoea [None]
  - Dysgeusia [None]
  - Treatment noncompliance [None]
